FAERS Safety Report 17736120 (Version 3)
Quarter: 2020Q2

REPORT INFORMATION
  Report Type: Spontaneous
  Country: FR (occurrence: FR)
  Receive Date: 20200501
  Receipt Date: 20200513
  Transmission Date: 20200714
  Serious: Yes (Other)
  Sender: FDA-Public Use
  Company Number: FR-MYLANLABS-2020M1042983

PATIENT
  Sex: Male

DRUGS (1)
  1. BUPRENORPHINE. [Suspect]
     Active Substance: BUPRENORPHINE
     Indication: PRODUCT USED FOR UNKNOWN INDICATION
     Dosage: 34 MILLIGRAM, QD
     Dates: end: 20200229

REACTIONS (13)
  - Feeling cold [Recovered/Resolved]
  - Impaired work ability [Unknown]
  - Vomiting [Recovered/Resolved]
  - Sleep deficit [Recovered/Resolved]
  - Diarrhoea [Recovered/Resolved]
  - Hallucinations, mixed [Recovered/Resolved]
  - Nausea [Recovered/Resolved]
  - Prescribed overdose [Recovered/Resolved]
  - Asthenia [Recovered/Resolved]
  - Mental fatigue [Recovered/Resolved]
  - Depressed mood [Recovered/Resolved]
  - Drug withdrawal syndrome [Recovered/Resolved]
  - Product prescribing issue [Recovered/Resolved]

NARRATIVE: CASE EVENT DATE: 20200229
